FAERS Safety Report 5889226-8 (Version None)
Quarter: 2008Q3

REPORT INFORMATION
  Report Type: 
  Country: None (occurrence: None)
  Receive Date: 20080919
  Receipt Date: 20080909
  Transmission Date: 20090109
  Serious: Yes (Death)
  Sender: FDA-Public Use
  Company Number: US-ROCHE-577818

PATIENT
  Sex: Female
  Weight: 93.9 kg

DRUGS (1)
  1. CAPECITABINE [Suspect]
     Dosage: DOSE REPORTED AS: 3X500MG.
     Route: 065
     Dates: end: 20080604

REACTIONS (1)
  - DISEASE PROGRESSION [None]
